FAERS Safety Report 9161311 (Version 1)
Quarter: 2013Q1

REPORT INFORMATION
  Report Type: Spontaneous
  Country: US (occurrence: US)
  Receive Date: 20130313
  Receipt Date: 20130313
  Transmission Date: 20140127
  Serious: No
  Sender: FDA-Public Use
  Company Number: US-009507513-1303USA004285

PATIENT
  Sex: Male

DRUGS (4)
  1. RIBAVIRIN [Suspect]
     Indication: CHRONIC HEPATITIS C
     Dosage: 1000 MG, DAILY
     Route: 048
     Dates: start: 20120629, end: 2012
  2. RIBAVIRIN [Suspect]
     Dosage: 800 MG, DAILY
     Route: 048
     Dates: start: 2012, end: 20130111
  3. PEGINTERFERON ALFA-2A [Suspect]
     Indication: CHRONIC HEPATITIS C
     Dosage: 180 MICROGRAM, QW
     Route: 058
     Dates: start: 20120629, end: 20130111
  4. BOCEPREVIR [Suspect]
     Indication: CHRONIC HEPATITIS C
     Dosage: UNK
     Route: 048
     Dates: start: 20120728

REACTIONS (25)
  - Nervousness [Unknown]
  - Anxiety [Unknown]
  - Nausea [Unknown]
  - Vomiting [Unknown]
  - Fatigue [Unknown]
  - Apathy [Unknown]
  - Asthenia [Unknown]
  - Depression [Unknown]
  - Dyspepsia [Unknown]
  - Weight increased [Unknown]
  - Hair growth abnormal [Unknown]
  - Hypertrichosis [Unknown]
  - Insomnia [Unknown]
  - Chills [Unknown]
  - Myalgia [Unknown]
  - Decreased appetite [Unknown]
  - Rash [Unknown]
  - Cardiac disorder [Recovered/Resolved]
  - Chest pain [Unknown]
  - Dyspnoea [Recovered/Resolved]
  - Dizziness [Recovered/Resolved]
  - Heart rate increased [Recovered/Resolved]
  - Hypotension [Unknown]
  - Palpitations [Unknown]
  - Poor quality sleep [Unknown]
